FAERS Safety Report 8457421-X (Version None)
Quarter: 2012Q2

REPORT INFORMATION
  Report Type: 
  Country: None (occurrence: None)
  Receive Date: 20120621
  Receipt Date: 20120612
  Transmission Date: 20120825
  Serious: Yes (Other)
  Sender: FDA-Public Use
  Company Number: US-ALLERGAN-1203130US

PATIENT
  Age: 65 Year
  Sex: Female

DRUGS (7)
  1. GLYBURIDE [Concomitant]
     Indication: DIABETES MELLITUS
  2. LISINOPRIL [Concomitant]
     Indication: HYPERTENSION
  3. OZURDEX [Suspect]
     Indication: DIABETIC RETINAL OEDEMA
     Dosage: 0.7 MG, SINGLE
     Route: 031
     Dates: start: 20120213, end: 20120213
  4. LASIX [Concomitant]
     Indication: HYPERTENSION
  5. WELLBUTRIN [Concomitant]
     Indication: DEPRESSION
  6. CELEXA [Concomitant]
     Indication: DEPRESSION
  7. SIMVASTATIN [Concomitant]
     Indication: HYPERCHOLESTEROLAEMIA

REACTIONS (3)
  - VISUAL ACUITY REDUCED [None]
  - CORNEAL OEDEMA [None]
  - DEVICE DISLOCATION [None]
